FAERS Safety Report 8493879-8 (Version None)
Quarter: 2012Q3

REPORT INFORMATION
  Report Type: 
  Country: None (occurrence: None)
  Receive Date: 20120706
  Receipt Date: 20120628
  Transmission Date: 20120928
  Serious: Yes (Other)
  Sender: FDA-Public Use
  Company Number: US-RB-041922-12

PATIENT
  Age: 22 Year
  Sex: Male

DRUGS (1)
  1. SUBOXONE [Suspect]
     Indication: DRUG DEPENDENCE
     Dosage: VARIOUS DOSES
     Route: 060
     Dates: start: 20080101

REACTIONS (3)
  - PAIN [None]
  - LOWER LIMB FRACTURE [None]
  - FALL [None]
